FAERS Safety Report 10663825 (Version 4)
Quarter: 2015Q1

REPORT INFORMATION
  Report Type: Report from Study
  Country: US (occurrence: US)
  Receive Date: 20141219
  Receipt Date: 20150206
  Transmission Date: 20150720
  Serious: No
  Sender: FDA-Public Use
  Company Number: US-AMGEN-USASL2014098286

PATIENT
  Age: 50 Year
  Sex: Female
  Weight: 290 kg

DRUGS (1)
  1. ENBREL [Suspect]
     Active Substance: ETANERCEPT
     Indication: RHEUMATOID ARTHRITIS
     Dosage: 50 MG, QWK
     Route: 058
     Dates: start: 20140822

REACTIONS (6)
  - Injection site pruritus [Recovered/Resolved]
  - Chest X-ray abnormal [Unknown]
  - Toothache [Not Recovered/Not Resolved]
  - Tooth infection [Unknown]
  - Injection site reaction [Unknown]
  - Injection site erythema [Recovered/Resolved]

NARRATIVE: CASE EVENT DATE: 20141210
